FAERS Safety Report 4843506-3 (Version None)
Quarter: 2005Q4

REPORT INFORMATION
  Report Type: 
  Country: None (occurrence: None)
  Receive Date: 20051202
  Receipt Date: 20051119
  Transmission Date: 20060501
  Serious: Yes (Other)
  Sender: FDA-Public Use
  Company Number: PHEH2005US12797

PATIENT
  Sex: Male

DRUGS (3)
  1. GLEEVEC [Suspect]
     Indication: GASTROINTESTINAL STROMAL TUMOUR
     Dosage: 400 MG, UNK
     Route: 065
  2. GLEEVEC [Suspect]
     Dosage: 800 MG, UNK
  3. AVANDAMET [Suspect]

REACTIONS (2)
  - DRUG INTERACTION [None]
  - MALIGNANT NEOPLASM PROGRESSION [None]
